FAERS Safety Report 6066621-8 (Version None)
Quarter: 2009Q1

REPORT INFORMATION
  Report Type: 
  Country: None (occurrence: None)
  Receive Date: 20090205
  Receipt Date: 20090204
  Transmission Date: 20090719
  Serious: Yes (Death, Life-Threatening, Hospitalization)
  Sender: FDA-Public Use
  Company Number: B0557433A

PATIENT
  Age: 67 Year
  Sex: Female
  Weight: 34 kg

DRUGS (2)
  1. FLOLAN [Suspect]
     Indication: MIXED CONNECTIVE TISSUE DISEASE
     Route: 042
     Dates: start: 20021112
  2. REVATIO [Concomitant]
     Route: 048

REACTIONS (3)
  - ANAEMIA [None]
  - DEATH [None]
  - HYPOTENSION [None]
